FAERS Safety Report 5840493-6 (Version None)
Quarter: 2008Q3

REPORT INFORMATION
  Report Type: 
  Country: None (occurrence: None)
  Receive Date: 20080811
  Receipt Date: 20080728
  Transmission Date: 20090109
  Serious: Yes (Other)
  Sender: FDA-Public Use
  Company Number: US-ASTRAZENECA-2008UW15638

PATIENT
  Age: 15915 Day
  Sex: Male

DRUGS (3)
  1. CRESTOR [Suspect]
     Dosage: 10 MG (ONE HALF OF A 20 MG TABLET)
     Route: 048
     Dates: start: 20060101
  2. AVALIDE [Concomitant]
  3. GLIMEPIRIDE [Concomitant]

REACTIONS (1)
  - TYPE 2 DIABETES MELLITUS [None]
